FAERS Safety Report 4437314-5 (Version None)
Quarter: 2004Q3

REPORT INFORMATION
  Report Type: 
  Country: None (occurrence: None)
  Receive Date: 20040726
  Receipt Date: 20040324
  Transmission Date: 20050211
  Serious: No
  Sender: FDA-Public Use
  Company Number: USA040363006

PATIENT
  Age: 52 Year
  Sex: Female
  Weight: 57 kg

DRUGS (4)
  1. FORTEO [Suspect]
     Indication: OSTEOPOROSIS
     Dosage: 20 UG/L DAY
     Dates: start: 20040301
  2. CREATOR (ROSUVASTATIN) [Concomitant]
  3. ANTACID TAB [Concomitant]
  4. ASPIRIN [Concomitant]

REACTIONS (5)
  - ARTHRALGIA [None]
  - FEELING HOT [None]
  - FLUSHING [None]
  - NAUSEA [None]
  - VERTIGO [None]
